FAERS Safety Report 19300747 (Version 1)
Quarter: 2021Q2

REPORT INFORMATION
  Report Type: Spontaneous
  Country: CA (occurrence: CA)
  Receive Date: 20210525
  Receipt Date: 20210525
  Transmission Date: 20210717
  Serious: Yes (Life-Threatening, Disabling, Other)
  Sender: FDA-Public Use
  Company Number: CA-TEVA-2021-CA-1913747

PATIENT
  Age: 42 Year
  Sex: Male

DRUGS (9)
  1. QUETIAPINE FUMARATE. [Suspect]
     Active Substance: QUETIAPINE FUMARATE
     Indication: PAIN
     Dosage: 400 MILLIGRAM DAILY;
     Route: 048
  2. GABAPENTIN. [Concomitant]
     Active Substance: GABAPENTIN
  3. VALPROIC ACID. [Concomitant]
     Active Substance: VALPROIC ACID
  4. LOXAPINE. [Concomitant]
     Active Substance: LOXAPINE
  5. QUETIAPINE FUMARATE. [Suspect]
     Active Substance: QUETIAPINE FUMARATE
     Indication: INSOMNIA
     Dosage: 400 MILLIGRAM DAILY;
     Route: 048
  6. MELATONIN [Concomitant]
     Active Substance: MELATONIN
  7. DIAZEPAM. [Concomitant]
     Active Substance: DIAZEPAM
  8. LAMOTRIGINE. [Concomitant]
     Active Substance: LAMOTRIGINE
  9. VITAMIN B1 [Concomitant]
     Active Substance: THIAMINE HYDROCHLORIDE

REACTIONS (24)
  - Extrapyramidal disorder [Not Recovered/Not Resolved]
  - Narcolepsy [Not Recovered/Not Resolved]
  - Respiration abnormal [Not Recovered/Not Resolved]
  - Restless legs syndrome [Not Recovered/Not Resolved]
  - Secondary tic [Not Recovered/Not Resolved]
  - Akathisia [Not Recovered/Not Resolved]
  - Fatigue [Not Recovered/Not Resolved]
  - Respiratory rate decreased [Not Recovered/Not Resolved]
  - Loss of consciousness [Not Recovered/Not Resolved]
  - Muscle atrophy [Not Recovered/Not Resolved]
  - Respiratory disorder [Not Recovered/Not Resolved]
  - Tendonitis [Not Recovered/Not Resolved]
  - Genetic polymorphism [Not Recovered/Not Resolved]
  - Hypopnoea [Not Recovered/Not Resolved]
  - Seizure [Not Recovered/Not Resolved]
  - Amnesia [Not Recovered/Not Resolved]
  - Tardive dyskinesia [Not Recovered/Not Resolved]
  - Carpal tunnel syndrome [Not Recovered/Not Resolved]
  - General physical health deterioration [Not Recovered/Not Resolved]
  - Pain [Not Recovered/Not Resolved]
  - Parkinsonism [Not Recovered/Not Resolved]
  - Conversion disorder [Not Recovered/Not Resolved]
  - Family stress [Not Recovered/Not Resolved]
  - Partner stress [Not Recovered/Not Resolved]
